FAERS Safety Report 5870003-9 (Version None)
Quarter: 2008Q3

REPORT INFORMATION
  Report Type: 
  Country: None (occurrence: None)
  Receive Date: 20080904
  Receipt Date: 20080827
  Transmission Date: 20090109
  Serious: Yes (Hospitalization)
  Sender: FDA-Public Use
  Company Number: SE-BRISTOL-MYERS SQUIBB COMPANY-12780169

PATIENT
  Age: 70 Year
  Sex: Female

DRUGS (1)
  1. IRBESARTAN [Suspect]
     Indication: CARDIAC FAILURE
     Dosage: START 150MG 6/12/04 TO 10/24/04;75MG 11/04/04 TO 12/12/04;INTERRUPTED;75MG AS OF 12/23/04
     Route: 048
     Dates: start: 20040612

REACTIONS (2)
  - FALL [None]
  - HIP FRACTURE [None]
